FAERS Safety Report 25267216 (Version 2)
Quarter: 2025Q2

REPORT INFORMATION
  Report Type: Spontaneous
  Country: US (occurrence: US)
  Receive Date: 20250505
  Receipt Date: 20250512
  Transmission Date: 20250716
  Serious: No
  Sender: CHURCH & DWIGHT
  Company Number: US-CHURCH AND DWIGHT-2025-CDW-00602

PATIENT
  Age: 54 Year
  Sex: Male

DRUGS (1)
  1. ZICAM COLD REMEDY NASAL SWABS (HOMEOPATHICS) [Suspect]
     Active Substance: HOMEOPATHICS\ZINC ACETATE\ZINC GLUCONATE
     Indication: Sinus congestion
     Route: 045

REACTIONS (1)
  - Parosmia [Recovering/Resolving]
